FAERS Safety Report 20722530 (Version 2)
Quarter: 2022Q2

REPORT INFORMATION
  Report Type: Spontaneous
  Country: IL (occurrence: IL)
  Receive Date: 20220418
  Receipt Date: 20220603
  Transmission Date: 20220721
  Serious: Yes (Other)
  Sender: FDA-Public Use
  Company Number: IL-ALXN-A202204608

PATIENT
  Age: 29 Year
  Sex: Female

DRUGS (1)
  1. ULTOMIRIS [Suspect]
     Active Substance: RAVULIZUMAB-CWVZ
     Indication: Paroxysmal nocturnal haemoglobinuria
     Dosage: 3300 MG EVERY 8 WEEKS
     Route: 065
     Dates: start: 202005

REACTIONS (3)
  - Haemolysis [Unknown]
  - Weight decreased [Unknown]
  - Drug effect less than expected [Unknown]
